FAERS Safety Report 17684462 (Version 2)
Quarter: 2020Q2

REPORT INFORMATION
  Report Type: Report from Study
  Country: US (occurrence: US)
  Receive Date: 20200420
  Receipt Date: 20200423
  Transmission Date: 20200714
  Serious: Yes (Death, Hospitalization, Other)
  Sender: FDA-Public Use
  Company Number: US-BRISTOL-MYERS SQUIBB COMPANY-BMS-2020-030876

PATIENT
  Age: 63 Year
  Sex: Male
  Weight: 121.1 kg

DRUGS (4)
  1. NIVOLUMAB [Suspect]
     Active Substance: NIVOLUMAB
     Indication: ADENOCARCINOMA
     Dosage: 240 MILLIGRAM, Q2WK
     Route: 042
     Dates: start: 20200214, end: 20200312
  2. 5-FLUOROURACIL [Suspect]
     Active Substance: FLUOROURACIL
     Indication: ADENOCARCINOMA
     Dosage: 2400 MILLIGRAM/SQ. METER, Q2WK
     Route: 042
     Dates: start: 20200214, end: 20200312
  3. IRINOTECAN LIPOSOME [Suspect]
     Active Substance: IRINOTECAN
     Indication: ADENOCARCINOMA
     Dosage: 70 MILLIGRAM/SQ. METER, Q2WK
     Route: 042
     Dates: start: 20200214, end: 20200312
  4. LEUCOVORIN CALCIUM. [Suspect]
     Active Substance: LEUCOVORIN CALCIUM
     Indication: ADENOCARCINOMA
     Dosage: 400 MILLIGRAM/SQ. METER, Q2WK
     Route: 042
     Dates: start: 20200214, end: 20200312

REACTIONS (2)
  - Acute kidney injury [Fatal]
  - Malignant neoplasm progression [Fatal]

NARRATIVE: CASE EVENT DATE: 20200409
